FAERS Safety Report 8245334-8 (Version None)
Quarter: 2012Q1

REPORT INFORMATION
  Report Type: 
  Country: None (occurrence: None)
  Receive Date: 20120329
  Receipt Date: 20120319
  Transmission Date: 20120608
  Serious: Yes (Other)
  Sender: FDA-Public Use
  Company Number: JP-VALEANT-2012VX001359

PATIENT

DRUGS (5)
  1. INTERFERON ALFA-2B [Suspect]
     Dosage: DOSE UNIT:3000000
     Route: 030
  2. FLUOROURACIL [Suspect]
     Route: 013
  3. ANTIEMETICS [Concomitant]
     Route: 065
  4. CISPLATIN [Suspect]
     Route: 013
  5. ANTINAUSEANTS [Concomitant]
     Route: 065

REACTIONS (2)
  - PEPTIC ULCER [None]
  - PROCEDURAL COMPLICATION [None]
